FAERS Safety Report 17040560 (Version 1)
Quarter: 2019Q4

REPORT INFORMATION
  Report Type: Spontaneous
  Country: US (occurrence: US)
  Receive Date: 20191117
  Receipt Date: 20191117
  Transmission Date: 20200122
  Serious: No
  Sender: FDA-Public Use
  Company Number: US-LEXICON PHARMACEUTICALS, INC-19-1606-01010

PATIENT
  Sex: Male

DRUGS (4)
  1. XERMELO [Suspect]
     Active Substance: TELOTRISTAT ETHYL
     Indication: CARCINOID TUMOUR OF THE SMALL BOWEL
  2. XERMELO [Suspect]
     Active Substance: TELOTRISTAT ETHYL
     Indication: CARCINOID SYNDROME
     Dates: start: 20190219
  3. NORCO [Concomitant]
     Active Substance: ACETAMINOPHEN\HYDROCODONE BITARTRATE
  4. ATENOLOL. [Concomitant]
     Active Substance: ATENOLOL

REACTIONS (3)
  - Diarrhoea [Unknown]
  - Flatulence [Unknown]
  - Off label use [Unknown]
